FAERS Safety Report 19798854 (Version 1)
Quarter: 2021Q3

REPORT INFORMATION
  Report Type: Spontaneous
  Country: IE (occurrence: IE)
  Receive Date: 20210907
  Receipt Date: 20210907
  Transmission Date: 20211014
  Serious: Yes (Disabling, Other)
  Sender: FDA-Public Use
  Company Number: IE-ACCORD-237369

PATIENT
  Age: 56 Year
  Sex: Male

DRUGS (4)
  1. CANDESARTAN. [Concomitant]
     Active Substance: CANDESARTAN
     Indication: HYPERTENSION
     Dosage: STRENGTH: 8 MG MILLIGRAM(S)
     Dates: start: 20200120, end: 20210722
  2. PANTOPRAZOLE [Concomitant]
     Active Substance: PANTOPRAZOLE
     Dosage: STRENGTH: 40 MG MILLIGRAM(S)
     Dates: start: 20160513, end: 20210722
  3. ROSUVASTATIN/ROSUVASTATIN CALCIUM [Suspect]
     Active Substance: ROSUVASTATIN CALCIUM
     Indication: HYPERLIPIDAEMIA
     Dosage: STRENGTH: 10 MG MILLIGRAM(S)
     Route: 048
     Dates: start: 20210225, end: 20210621
  4. ATORVASTATIN/ATORVASTATIN CALCIUM [Suspect]
     Active Substance: ATORVASTATIN CALCIUM
     Indication: HYPERLIPIDAEMIA
     Dosage: STRENGTH: 10 MG MILLIGRAM(S), 10 MG AT NIGHT
     Route: 048
     Dates: start: 20210701, end: 20210729

REACTIONS (2)
  - Blister [Recovered/Resolved]
  - Mouth ulceration [Recovered/Resolved]

NARRATIVE: CASE EVENT DATE: 20210619
